FAERS Safety Report 9828249 (Version 1)
Quarter: 2013Q4

REPORT INFORMATION
  Report Type: Spontaneous
  Country: US (occurrence: None)
  Receive Date: 20131223
  Receipt Date: 20131223
  Transmission Date: 20140711
  Serious: No
  Sender: FDA-Public Use
  Company Number: 221024LEO

PATIENT
  Sex: Male

DRUGS (1)
  1. PICATO (0.015%, GEL) [Suspect]
     Indication: PRECANCEROUS CELLS PRESENT
     Dosage: DERMAL

REACTIONS (6)
  - Application site erythema [None]
  - Application site swelling [None]
  - Application site vesicles [None]
  - Application site pain [None]
  - Wrong technique in drug usage process [None]
  - Drug administration error [None]
